FAERS Safety Report 8102357-7 (Version None)
Quarter: 2012Q1

REPORT INFORMATION
  Report Type: 
  Country: None (occurrence: None)
  Receive Date: 20120201
  Receipt Date: 20120125
  Transmission Date: 20120608
  Serious: No
  Sender: FDA-Public Use
  Company Number: US-PFIZER INC-2012021446

PATIENT
  Sex: Female
  Weight: 93.424 kg

DRUGS (5)
  1. CELEBREX [Suspect]
     Indication: CONNECTIVE TISSUE DISORDER
     Dosage: 200 MG, DAILY
     Dates: start: 20090101
  2. CELEBREX [Suspect]
     Indication: SPINAL COLUMN STENOSIS
  3. CELEBREX [Suspect]
     Indication: OSTEOARTHRITIS
  4. CELEBREX [Suspect]
     Indication: INTERVERTEBRAL DISC PROTRUSION
  5. HYDROCODONE [Concomitant]
     Indication: PAIN
     Dosage: UNK

REACTIONS (1)
  - PAIN [None]
